FAERS Safety Report 22050211 (Version 4)
Quarter: 2023Q1

REPORT INFORMATION
  Report Type: Spontaneous
  Country: US (occurrence: US)
  Receive Date: 20230301
  Receipt Date: 20230301
  Transmission Date: 20230418
  Serious: No
  Sender: FDA-Public Use
  Company Number: US-AMERICAN REGENT INC-2022001921

PATIENT

DRUGS (2)
  1. ESTRADIOL VALERATE [Suspect]
     Active Substance: ESTRADIOL VALERATE
     Indication: Product used for unknown indication
     Dosage: 40 MG/ML
  2. ESTRADIOL VALERATE [Suspect]
     Active Substance: ESTRADIOL VALERATE
     Dosage: 40 MG/ML

REACTIONS (2)
  - Injection site erythema [Unknown]
  - Injection site mass [None]
